FAERS Safety Report 9235188 (Version 9)
Quarter: 2014Q2

REPORT INFORMATION
  Report Type: Spontaneous
  Country: BE (occurrence: BE)
  Receive Date: 20130417
  Receipt Date: 20140627
  Transmission Date: 20141212
  Serious: Yes (Hospitalization, Other)
  Sender: FDA-Public Use
  Company Number: BE-AMGEN-BELSP2013026064

PATIENT
  Age: 76 Year
  Sex: Female

DRUGS (8)
  1. NPLATE [Suspect]
     Indication: IMMUNE THROMBOCYTOPENIC PURPURA
     Dosage: 0.64 ML, QWK
     Route: 058
     Dates: start: 20110404
  2. PLAVIX [Concomitant]
     Dosage: 75 MG, QD
     Dates: end: 20130905
  3. L-THYROXINE                        /00068001/ [Concomitant]
     Dosage: 125 MG, QD
  4. MEDROL                             /00049601/ [Concomitant]
     Dosage: 32 MG, QWK
     Dates: start: 20130729
  5. EMCONCOR [Concomitant]
     Dosage: 2.5 MG 2/DAY
  6. COVERSYL                           /00790702/ [Concomitant]
     Dosage: 10 MG, QD
     Dates: start: 20130626
  7. ZOCOR [Concomitant]
     Dosage: 20 MG, QD
  8. OMEPRAZOLE [Concomitant]
     Dosage: 20 MG, QD

REACTIONS (5)
  - Myocardial infarction [Unknown]
  - Platelet count decreased [Unknown]
  - Constipation [Unknown]
  - Nasopharyngitis [Recovered/Resolved]
  - Cough [Recovered/Resolved]
